FAERS Safety Report 7304689-9 (Version None)
Quarter: 2011Q1

REPORT INFORMATION
  Report Type: 
  Country: None (occurrence: None)
  Receive Date: 20110222
  Receipt Date: 20110217
  Transmission Date: 20110831
  Serious: Yes (Death, Hospitalization, Other)
  Sender: FDA-Public Use
  Company Number: US-AMGEN-USASP2011008864

PATIENT
  Age: 82 Year
  Sex: Male
  Weight: 69.841 kg

DRUGS (14)
  1. CHOLECALCIFEROL [Concomitant]
  2. DIAZEPAM [Concomitant]
  3. CHONDROITIN SULFATE W/GLUCOSAMINE [Concomitant]
  4. TRIAMCINOLONE [Concomitant]
  5. ALBUTEROL [Concomitant]
  6. FOLIC ACID [Concomitant]
  7. PYRIDOXINE [Concomitant]
  8. PREDNISONE [Concomitant]
     Dosage: 30 MG, QD
     Dates: start: 20101022
  9. PROPRANOLOL [Concomitant]
  10. VITAMIN D2 + CALCIUM               /00188401/ [Concomitant]
  11. NPLATE [Suspect]
     Indication: IDIOPATHIC THROMBOCYTOPENIC PURPURA
     Dosage: 3 A?G/KG, QWK
     Dates: start: 20110118, end: 20110210
  12. CYANOCOBALAMIN [Concomitant]
  13. CHOLESTYRAMINE [Concomitant]
  14. OMEPRAZOLE [Concomitant]

REACTIONS (16)
  - CHILLS [None]
  - RESPIRATORY FAILURE [None]
  - ATRIAL FIBRILLATION [None]
  - IMMUNOSUPPRESSION [None]
  - HYPOTENSION [None]
  - PLATELET COUNT DECREASED [None]
  - PYREXIA [None]
  - COUGH [None]
  - URINARY TRACT INFECTION [None]
  - MYOCARDIAL INFARCTION [None]
  - GRANULOCYTOPENIA [None]
  - PNEUMONIA [None]
  - PANCYTOPENIA [None]
  - SEPSIS [None]
  - DRUG INEFFECTIVE [None]
  - ASTHENIA [None]
